FAERS Safety Report 8582969-7 (Version None)
Quarter: 2012Q3

REPORT INFORMATION
  Report Type: 
  Country: None (occurrence: None)
  Receive Date: 20120809
  Receipt Date: 20070724
  Transmission Date: 20120928
  Serious: Yes (Other)
  Sender: FDA-Public Use
  Company Number: CO-PFIZER INC-2012190493

PATIENT
  Age: 75 Year
  Sex: Male

DRUGS (4)
  1. ACETYLSALICYLIC ACID [Concomitant]
     Dosage: 100 MG, 1X/DAY
  2. AMLODIPINE [Concomitant]
     Dosage: 5 MG, 1X/DAY
  3. LIPITOR [Suspect]
     Indication: DYSLIPIDAEMIA
     Dosage: 10 MG, 1X/DAY
  4. QUINAPRIL AND HYDROCHLOROTHIAZIDE [Suspect]
     Indication: HYPERTENSION
     Dosage: [QUINAPRIL HYDROCHLORIDE 20 MG] / [HYDROCHLOROTHIAZIDE 12.5 MG], 1X/DAY

REACTIONS (4)
  - RENAL FAILURE CHRONIC [None]
  - ACUTE MYOCARDIAL INFARCTION [None]
  - HYPERTENSIVE EMERGENCY [None]
  - DYSPNOEA [None]
